FAERS Safety Report 4569194-1 (Version None)
Quarter: 2005Q1

REPORT INFORMATION
  Report Type: 
  Country: None (occurrence: None)
  Receive Date: 20050126
  Receipt Date: 20050126
  Transmission Date: 20050727
  Serious: Yes (Other)
  Sender: FDA-Public Use
  Company Number: None

PATIENT
  Age: 61 Year
  Sex: Male
  Weight: 100.7 kg

DRUGS (2)
  1. AMOXICILLIN AND CLAVULANATE POTASSIUM [Suspect]
     Indication: SKIN LESION
     Dosage: 500MG, BID, ORAL
     Route: 048
     Dates: start: 20040324, end: 20040401
  2. AMOXICILLIN 500/CLAV K [Concomitant]

REACTIONS (1)
  - RASH [None]
